FAERS Safety Report 9371709 (Version 5)
Quarter: 2013Q3

REPORT INFORMATION
  Report Type: Spontaneous
  Country: US (occurrence: US)
  Receive Date: 20130627
  Receipt Date: 20130905
  Transmission Date: 20140515
  Serious: Yes (Other)
  Sender: FDA-Public Use
  Company Number: US-PFIZER INC-2013188990

PATIENT
  Age: 85 Year
  Sex: Female
  Weight: 72.6 kg

DRUGS (9)
  1. CELEBREX [Interacting]
     Indication: PERIARTHRITIS
  2. CELEBREX [Interacting]
     Indication: PERIARTHRITIS
  3. ATENOLOL [Interacting]
     Indication: HEART RATE INCREASED
     Dosage: 100 MG, 2X/DAY
  4. ASPIRIN [Concomitant]
     Dosage: 81 (UNITS NOT PROVIDED), 1X/DAY
  5. NITROGLYCERIN [Concomitant]
     Dosage: UNK, 1X/DAY
  6. CALCIUM 600 + D3 [Concomitant]
     Dosage: UNK, 1X/DAY
  7. PANTOPRAZOLE [Concomitant]
     Dosage: 40 MG, 1X/DAY
  8. LUTEIN [Concomitant]
     Dosage: UNK, 1X/DAY
  9. CELEBREX [Suspect]
     Indication: MYALGIA
     Dosage: 200 MG, DAILY
     Dates: start: 20121112, end: 201211

REACTIONS (7)
  - Cataract [Unknown]
  - Tachycardia [Recovered/Resolved]
  - Palpitations [Unknown]
  - Insomnia [Unknown]
  - Cardiac disorder [Unknown]
  - Drug ineffective [Unknown]
  - Potentiating drug interaction [Unknown]
